FAERS Safety Report 23031102 (Version 1)
Quarter: 2023Q4

REPORT INFORMATION
  Report Type: Spontaneous
  Country: US (occurrence: US)
  Receive Date: 20231005
  Receipt Date: 20231005
  Transmission Date: 20240109
  Serious: No
  Sender: FDA-Public Use
  Company Number: US-UROGEN PHARMA LTD.-2023-UGN-000066

PATIENT

DRUGS (6)
  1. JELMYTO [Suspect]
     Active Substance: MITOMYCIN
     Indication: Transitional cell cancer of the renal pelvis and ureter
     Dosage: 7 MILLILITER, ONCE A WEEK (INSTILLATION)
     Dates: start: 20230803, end: 20230803
  2. JELMYTO [Suspect]
     Active Substance: MITOMYCIN
     Dosage: 7 MILLILITER, ONCE A WEEK (INSTILLATION)
     Dates: start: 20230810, end: 20230810
  3. JELMYTO [Suspect]
     Active Substance: MITOMYCIN
     Dosage: ONCE A WEEK (INSTILLATION)
     Dates: start: 20230817, end: 20230817
  4. JELMYTO [Suspect]
     Active Substance: MITOMYCIN
     Dosage: ONCE A WEEK (INSTILLATION)
     Dates: start: 20230824, end: 20230824
  5. JELMYTO [Suspect]
     Active Substance: MITOMYCIN
     Dosage: ONCE A WEEK (INSTILLATION)
     Dates: start: 20230831, end: 20230831
  6. JELMYTO [Suspect]
     Active Substance: MITOMYCIN
     Dosage: ONCE A WEEK (INSTILLATION)
     Dates: start: 20230907, end: 20230907

REACTIONS (7)
  - Urticaria [Recovered/Resolved]
  - Urticaria [Recovered/Resolved]
  - Vulvovaginal burning sensation [Recovered/Resolved]
  - COVID-19 [Unknown]
  - Pruritus [Recovered/Resolved]
  - Pruritus [Recovered/Resolved]
  - Rash [Recovered/Resolved]

NARRATIVE: CASE EVENT DATE: 20230801
